FAERS Safety Report 13803284 (Version 1)
Quarter: 2017Q3

REPORT INFORMATION
  Report Type: Spontaneous
  Country: DE (occurrence: DE)
  Receive Date: 20170728
  Receipt Date: 20170728
  Transmission Date: 20171127
  Serious: Yes (Other)
  Sender: FDA-Public Use
  Company Number: DE-LUPIN (EUROPE) LIMITED-2016-03755

PATIENT
  Sex: Male

DRUGS (3)
  1. LAMOTRIGIN-HORMOSAN 50 MG DISPERS [Suspect]
     Active Substance: LAMOTRIGINE
     Indication: EPILEPSY
     Dosage: 50 MG,PRN,
     Route: 065
  2. LAMOTRIGIN-HORMOSAN 50 MG DISPERS [Suspect]
     Active Substance: LAMOTRIGINE
     Dosage: 50 MG,QD,
     Route: 065
  3. LAMOTRIGIN-HORMOSAN 50 MG DISPERS [Suspect]
     Active Substance: LAMOTRIGINE
     Dosage: 200 MG,BID,
     Route: 065

REACTIONS (2)
  - Drug ineffective [Unknown]
  - Epilepsy [Unknown]
